FAERS Safety Report 18461326 (Version 1)
Quarter: 2020Q4

REPORT INFORMATION
  Report Type: Spontaneous
  Country: US (occurrence: US)
  Receive Date: 20201104
  Receipt Date: 20201104
  Transmission Date: 20210114
  Serious: No
  Sender: FDA-Public Use
  Company Number: US-AUROBINDO-AUR-APL-2020-015120

PATIENT
  Age: 82 Year
  Sex: Female
  Weight: 52.15 kg

DRUGS (1)
  1. ESZOPICLONE  TABLET 2 MG USP [Suspect]
     Active Substance: ESZOPICLONE
     Indication: INSOMNIA
     Dosage: 1 DOSAGE FORM, DAILY (1 TABLET AT NIGHT)
     Route: 065

REACTIONS (3)
  - Feeling abnormal [Not Recovered/Not Resolved]
  - Dyskinesia [Not Recovered/Not Resolved]
  - Anxiety [Not Recovered/Not Resolved]
